FAERS Safety Report 7235759-1 (Version None)
Quarter: 2011Q1

REPORT INFORMATION
  Report Type: 
  Country: None (occurrence: None)
  Receive Date: 20110110
  Receipt Date: 20101220
  Transmission Date: 20110831
  Serious: Yes (Death, Life-Threatening, Other)
  Sender: FDA-Public Use
  Company Number: 2010AC000466

PATIENT
  Age: 60 Year
  Sex: Male
  Weight: 151.955 kg

DRUGS (12)
  1. LISINOPRIL [Concomitant]
  2. SLOW-MAG [Concomitant]
  3. DIGOXIN [Suspect]
     Dosage: PO
     Route: 048
     Dates: start: 19990101, end: 20090601
  4. CARVEDILOL [Concomitant]
  5. DIOVAN [Concomitant]
  6. DIGOXIN [Suspect]
     Dosage: 0.25 MG; QD; PO
     Route: 048
     Dates: start: 20030225, end: 20090401
  7. TORSEMIDE [Concomitant]
  8. POTASSIUM CHLORIDE [Concomitant]
  9. ACTOS [Concomitant]
  10. ASPIRIN [Concomitant]
  11. SIMVASTATIN [Concomitant]
  12. INSULIN [Concomitant]

REACTIONS (31)
  - MULTIPLE INJURIES [None]
  - TOXICITY TO VARIOUS AGENTS [None]
  - HEART RATE IRREGULAR [None]
  - UNEVALUABLE EVENT [None]
  - DYSPNOEA [None]
  - VENTRICULAR EXTRASYSTOLES [None]
  - DILATATION VENTRICULAR [None]
  - CARDIAC FAILURE CONGESTIVE [None]
  - CELLULITIS [None]
  - TREATMENT NONCOMPLIANCE [None]
  - ASTHENIA [None]
  - LEFT VENTRICULAR DYSFUNCTION [None]
  - DIZZINESS [None]
  - ECONOMIC PROBLEM [None]
  - ORTHOPNOEA [None]
  - TRICUSPID VALVE INCOMPETENCE [None]
  - MYOCARDIAL INFARCTION [None]
  - DEPRESSION [None]
  - DIABETES MELLITUS INADEQUATE CONTROL [None]
  - CARDIOACTIVE DRUG LEVEL BELOW THERAPEUTIC [None]
  - OBESITY [None]
  - COLOUR VISION TESTS ABNORMAL [None]
  - COUGH [None]
  - PULMONARY HYPERTENSION [None]
  - WEIGHT INCREASED [None]
  - ARRHYTHMIA [None]
  - NOCTURIA [None]
  - MITRAL VALVE INCOMPETENCE [None]
  - CONGESTIVE CARDIOMYOPATHY [None]
  - VENTRICULAR HYPOKINESIA [None]
  - ATRIAL HYPERTROPHY [None]
